FAERS Safety Report 9175845 (Version 3)
Quarter: 2013Q2

REPORT INFORMATION
  Report Type: Report from Study
  Country: CA (occurrence: CA)
  Receive Date: 20130320
  Receipt Date: 20130610
  Transmission Date: 20140414
  Serious: Yes (Hospitalization)
  Sender: FDA-Public Use
  Company Number: CA-ROCHE-1203173

PATIENT
  Age: 61 Year
  Sex: Male
  Weight: 102.9 kg

DRUGS (8)
  1. AVASTIN [Suspect]
     Indication: GLIOBLASTOMA
     Route: 042
     Dates: start: 20130301, end: 20130301
  2. TEMODAL [Concomitant]
  3. LIPITOR [Concomitant]
  4. DILANTIN [Concomitant]
  5. RAMIPRIL [Concomitant]
  6. DEXAMETHASONE [Concomitant]
  7. ASPIRIN [Concomitant]
  8. PROCHLORPERAZINE [Concomitant]

REACTIONS (2)
  - Confusional state [Unknown]
  - General physical health deterioration [Unknown]
